FAERS Safety Report 17837279 (Version 2)
Quarter: 2021Q1

REPORT INFORMATION
  Report Type: Report from Study
  Country: JP (occurrence: JP)
  Receive Date: 20200529
  Receipt Date: 20210315
  Transmission Date: 20210419
  Serious: Yes (Death, Other)
  Sender: FDA-Public Use
  Company Number: JP-AMGEN-JPNCT2020021228

PATIENT
  Age: 90 Year
  Sex: Male

DRUGS (16)
  1. DARBEPOETIN ALFA [Suspect]
     Active Substance: DARBEPOETIN ALFA
     Dosage: 120 MICROGRAM, Q2WK
     Route: 058
     Dates: start: 20170602, end: 20170630
  2. MEDICON [Concomitant]
     Active Substance: DEXTROMETHORPHAN HYDROBROMIDE
     Indication: PNEUMONIA
     Dosage: 45 MG
     Route: 048
     Dates: start: 20171231, end: 20180106
  3. SYMPROIC [Concomitant]
     Active Substance: NALDEMEDINE
     Indication: CONSTIPATION
     Dosage: 0.2 MG
     Route: 048
     Dates: start: 20180105, end: 20180112
  4. DARBEPOETIN ALFA [Suspect]
     Active Substance: DARBEPOETIN ALFA
     Dosage: 240 MICROGRAM, Q3WK
     Route: 058
     Dates: start: 20170714, end: 20170915
  5. DARBEPOETIN ALFA [Suspect]
     Active Substance: DARBEPOETIN ALFA
     Dosage: 240 MICROGRAM, Q2WK
     Route: 058
     Dates: start: 20170929, end: 20171208
  6. MORPHINE [MORPHINE HYDROCHLORIDE] [Suspect]
     Active Substance: MORPHINE HYDROCHLORIDE
     Indication: GENERAL PHYSICAL HEALTH DETERIORATION
     Dosage: 20 MG
     Route: 065
     Dates: start: 20180105, end: 20180116
  7. NEXIUM [Concomitant]
     Active Substance: ESOMEPRAZOLE MAGNESIUM
     Indication: INTESTINAL ULCER
     Dosage: 20 MG
     Route: 048
     Dates: start: 20171231, end: 20180106
  8. CEFEPIME [Concomitant]
     Active Substance: CEFEPIME HYDROCHLORIDE
     Indication: PNEUMONIA
     Dosage: 4 G
     Route: 065
     Dates: start: 20171229, end: 20180102
  9. MORPHINE [Concomitant]
     Active Substance: MORPHINE
     Indication: GENERAL PHYSICAL HEALTH DETERIORATION
     Dosage: 20 MG
     Route: 065
     Dates: start: 20180105, end: 20180116
  10. DARBEPOETIN ALFA [Suspect]
     Active Substance: DARBEPOETIN ALFA
     Dosage: 240 MICROGRAM
     Route: 058
     Dates: start: 20171215, end: 20171215
  11. PRIMOBOLAN [Concomitant]
     Active Substance: METHENOLONE
     Indication: MYELODYSPLASTIC SYNDROME
     Dosage: 20 MG
     Route: 048
     Dates: end: 20170928
  12. GLAKAY [Concomitant]
     Active Substance: MENATETRENONE
     Indication: MYELODYSPLASTIC SYNDROME
     Dosage: 45 MG
     Route: 048
     Dates: start: 20170929, end: 201712
  13. HYDREA [Concomitant]
     Active Substance: HYDROXYUREA
     Indication: MYELODYSPLASTIC SYNDROME
     Dosage: 500 MG
     Route: 048
     Dates: start: 20171208, end: 20180105
  14. DARBEPOETIN ALFA [Suspect]
     Active Substance: DARBEPOETIN ALFA
     Indication: MYELODYSPLASTIC SYNDROME
     Dosage: 120 MICROGRAM, Q3WK
     Route: 058
     Dates: start: 20170428, end: 20170519
  15. PREDONINE [Concomitant]
     Active Substance: PREDNISOLONE
     Indication: GENERAL PHYSICAL HEALTH DETERIORATION
     Dosage: 20 MG
     Route: 065
     Dates: start: 20180102, end: 20180116
  16. MEROPENEM. [Concomitant]
     Active Substance: MEROPENEM
     Indication: PNEUMONIA
     Dosage: 2 G
     Route: 065
     Dates: start: 20180103, end: 20180109

REACTIONS (5)
  - Leukaemia [Fatal]
  - General physical health deterioration [Fatal]
  - Pneumonia [Fatal]
  - Constipation [Not Recovered/Not Resolved]
  - Gastric ulcer [Not Recovered/Not Resolved]

NARRATIVE: CASE EVENT DATE: 20171229
